FAERS Safety Report 6121186-7 (Version None)
Quarter: 2009Q1

REPORT INFORMATION
  Report Type: 
  Country: None (occurrence: None)
  Receive Date: 20090312
  Receipt Date: 20090312
  Transmission Date: 20090719
  Serious: No
  Sender: FDA-Public Use
  Company Number: None

PATIENT
  Sex: Female
  Weight: 104.3273 kg

DRUGS (1)
  1. ZICAM EXTREME CONGESTION RELIEF MATRIXX [Suspect]
     Indication: NASAL CONGESTION
     Dosage: 2-3 PUMPS 12 HOURS NASAL
     Route: 045
     Dates: start: 20090304, end: 20090306

REACTIONS (5)
  - AGEUSIA [None]
  - ANOSMIA [None]
  - NASAL DISCOMFORT [None]
  - OROPHARYNGEAL PAIN [None]
  - THROAT IRRITATION [None]
